FAERS Safety Report 6265436-5 (Version None)
Quarter: 2009Q3

REPORT INFORMATION
  Report Type: 
  Country: None (occurrence: None)
  Receive Date: 20090713
  Receipt Date: 20090703
  Transmission Date: 20100115
  Serious: Yes (Hospitalization)
  Sender: FDA-Public Use
  Company Number: GB-NOVOPROD-286423

PATIENT
  Sex: Female

DRUGS (1)
  1. KLIOVANCE [Suspect]
     Indication: BONE DENSITY DECREASED
     Dates: start: 20031201, end: 20090324

REACTIONS (2)
  - BREAST CYST [None]
  - VAGINAL HAEMORRHAGE [None]
